FAERS Safety Report 7202450-7 (Version None)
Quarter: 2010Q4

REPORT INFORMATION
  Report Type: 
  Country: None (occurrence: None)
  Receive Date: 20101229
  Receipt Date: 20101222
  Transmission Date: 20110411
  Serious: Yes (Hospitalization)
  Sender: FDA-Public Use
  Company Number: A0901746A

PATIENT
  Sex: Male

DRUGS (1)
  1. REQUIP XL [Suspect]
     Dosage: 2MG UNKNOWN
     Route: 065
     Dates: start: 20100125

REACTIONS (1)
  - CARDIAC DISORDER [None]
